FAERS Safety Report 13640255 (Version 3)
Quarter: 2017Q3

REPORT INFORMATION
  Report Type: Report from Study
  Country: CZ (occurrence: CZ)
  Receive Date: 20170610
  Receipt Date: 20170717
  Transmission Date: 20171127
  Serious: Yes (Hospitalization)
  Sender: FDA-Public Use
  Company Number: CZ-AMGEN-CZECT2017017462

PATIENT
  Age: 72 Year
  Sex: Male

DRUGS (19)
  1. TRALGIT [Concomitant]
     Active Substance: TRAMADOL
     Dosage: 100 MG, UNK
     Route: 048
     Dates: start: 20161107
  2. KLACID [Concomitant]
     Active Substance: CLARITHROMYCIN
     Dosage: 500 MG, UNK
     Route: 048
     Dates: start: 20170109, end: 20170119
  3. LANZUL [Concomitant]
     Active Substance: LANSOPRAZOLE
     Dosage: 15 MG, UNK
     Route: 048
     Dates: start: 20160513
  4. ZOVIRAX [Concomitant]
     Active Substance: ACYCLOVIR
     Dosage: 400 MG, UNK
     Route: 048
     Dates: start: 2015
  5. TEZEO [Concomitant]
     Active Substance: TELMISARTAN
     Dosage: 80 MG, UNK
     Route: 048
     Dates: start: 2011, end: 20170113
  6. CARFILZOMIB [Suspect]
     Active Substance: CARFILZOMIB
     Indication: PLASMA CELL MYELOMA
     Dosage: 57 MG, PER CHEMO REGIM
     Route: 042
     Dates: start: 20160516
  7. URIZIA [Concomitant]
     Dosage: 1 UNK, UNK
     Route: 048
     Dates: start: 2015
  8. EZETROL [Concomitant]
     Active Substance: EZETIMIBE
     Dosage: 10 MG, UNK
     Route: 048
     Dates: start: 2014
  9. ZOLEDRONIC [Concomitant]
     Active Substance: ZOLEDRONIC ACID
     Dosage: 4 MG, UNK
     Route: 042
     Dates: start: 20150212
  10. CARFILZOMIB [Suspect]
     Active Substance: CARFILZOMIB
     Dosage: 27 MG/M2, PER CHEMO REGIM
     Route: 042
  11. GODASAL [Concomitant]
     Active Substance: ASPIRIN\GLYCINE
     Dosage: 100 MG, UNK
     Route: 048
     Dates: start: 2001
  12. GABAPENTIN. [Concomitant]
     Active Substance: GABAPENTIN
     Dosage: 300 MG, UNK
     Route: 048
     Dates: start: 20161121
  13. ALFUZOSTAD [Concomitant]
     Dosage: 10 MG, UNK
     Route: 048
     Dates: start: 20160928
  14. ZABCARE [Concomitant]
     Dosage: 10 MG, UNK
     Route: 048
     Dates: start: 20160928
  15. DEXAMETHASONE. [Suspect]
     Active Substance: DEXAMETHASONE
     Indication: PLASMA CELL MYELOMA
     Dosage: 40 MG, PER CHEMO REGIM
     Route: 042
     Dates: start: 20160516
  16. SORVASTA [Concomitant]
     Active Substance: ROSUVASTATIN CALCIUM
     Dosage: 40 MG, UNK
     Route: 048
     Dates: start: 2011
  17. ALOPURINOL [Concomitant]
     Active Substance: ALLOPURINOL
     Dosage: 100 MG, UNK
     Route: 048
     Dates: start: 2001
  18. BISOPROLOL FUMARATE. [Concomitant]
     Active Substance: BISOPROLOL FUMARATE
     Dosage: 2.5 MG, UNK
     Route: 048
     Dates: start: 2014
  19. FURON [Concomitant]
     Active Substance: FUROSEMIDE
     Dosage: 20 MG, UNK
     Route: 048
     Dates: start: 20160420

REACTIONS (1)
  - Hypotension [Recovered/Resolved]

NARRATIVE: CASE EVENT DATE: 20170130
